FAERS Safety Report 25269436 (Version 4)
Quarter: 2025Q3

REPORT INFORMATION
  Report Type: Report from Study
  Country: GB (occurrence: GB)
  Receive Date: 20250505
  Receipt Date: 20250819
  Transmission Date: 20251021
  Serious: Yes (Other)
  Sender: NOVARTIS
  Company Number: GB-002147023-NVSC2025GB072118

PATIENT
  Sex: Male

DRUGS (1)
  1. COSENTYX [Suspect]
     Active Substance: SECUKINUMAB
     Indication: Psoriatic arthropathy
     Dosage: 300 MG, QMO
     Route: 065
     Dates: start: 2023

REACTIONS (7)
  - Erectile dysfunction [Recovered/Resolved]
  - Middle insomnia [Recovered/Resolved]
  - Erectile dysfunction [Not Recovered/Not Resolved]
  - Middle insomnia [Not Recovered/Not Resolved]
  - Arthralgia [Unknown]
  - Fall [Unknown]
  - Hand fracture [Recovered/Resolved]

NARRATIVE: CASE EVENT DATE: 20230101
